FAERS Safety Report 5609738-1 (Version None)
Quarter: 2008Q1

REPORT INFORMATION
  Report Type: 
  Country: None (occurrence: None)
  Receive Date: 20080131
  Receipt Date: 20070312
  Transmission Date: 20080703
  Serious: No
  Sender: FDA-Public Use
  Company Number: US-BAYER-200710781BCC

PATIENT
  Sex: Female
  Weight: 88 kg

DRUGS (3)
  1. ALEVE COLD AND SINUS [Suspect]
     Indication: HEADACHE
     Dosage: TOTAL DAILY DOSE: 220 MG  UNIT DOSE: 220 MG
     Route: 048
  2. PREVACID [Concomitant]
  3. LECITHIN [Concomitant]

REACTIONS (1)
  - HEADACHE [None]
